FAERS Safety Report 9490881 (Version 1)
Quarter: 2013Q3

REPORT INFORMATION
  Report Type: Spontaneous
  Country: US (occurrence: US)
  Receive Date: 20130830
  Receipt Date: 20130830
  Transmission Date: 20140515
  Serious: No
  Sender: FDA-Public Use
  Company Number: US-PFIZER INC-2013245354

PATIENT
  Sex: Male

DRUGS (1)
  1. TORISEL [Suspect]
     Indication: NEOPLASM MALIGNANT
     Dosage: UNK

REACTIONS (1)
  - Fungal infection [Unknown]
